FAERS Safety Report 5947636-4 (Version None)
Quarter: 2008Q4

REPORT INFORMATION
  Report Type: 
  Country: None (occurrence: None)
  Receive Date: 20081107
  Receipt Date: 20081022
  Transmission Date: 20090506
  Serious: Yes (Other)
  Sender: FDA-Public Use
  Company Number: 200811001

PATIENT
  Age: 73 Year
  Sex: Male
  Weight: 64.8644 kg

DRUGS (1)
  1. TESTIM [Suspect]
     Indication: HYPOGONADISM
     Dosage: 50 MG, DAILY, TRANSDERMAL
     Route: 062
     Dates: start: 20080909, end: 20081021

REACTIONS (1)
  - PROSTATIC SPECIFIC ANTIGEN INCREASED [None]
